FAERS Safety Report 19759665 (Version 1)
Quarter: 2021Q3

REPORT INFORMATION
  Report Type: Spontaneous
  Country: PK (occurrence: PK)
  Receive Date: 20210830
  Receipt Date: 20210830
  Transmission Date: 20211014
  Serious: Yes (Other)
  Sender: FDA-Public Use
  Company Number: PK-AMGEN-PAKSP2021132388

PATIENT
  Age: 38 Year
  Sex: Female

DRUGS (8)
  1. METHOTREXATE. [Concomitant]
     Active Substance: METHOTREXATE
     Dosage: ONE AND HALF TABLET ON EVERY FRIDAY
  2. CARO Z [Concomitant]
     Dosage: 20 MG (ONE TABLET), DAILY
  3. HYDROXYCHLOROQUINE [Concomitant]
     Active Substance: HYDROXYCHLOROQUINE
     Dosage: 20 MG (TAKE 1+1), DAILY
  4. ACENAC [Concomitant]
     Dosage: 100 MG (TAKE 1+1 DAILY FOR 10 DAYS THEN STOP)
  5. ENBREL [Suspect]
     Active Substance: ETANERCEPT
     Indication: RHEUMATOID ARTHRITIS
     Dosage: 50 MG, WEEKLY TO 28 WEEKS CONTINUOUSLY
     Route: 058
  6. FOLIC ACID. [Concomitant]
     Active Substance: FOLIC ACID
     Dosage: ONE TABLET DAILY EXCEPT ON FRIDAY
  7. CAL ONE D FORTE [Concomitant]
     Dosage: 1 TABLET ONCE A MONTH
  8. OXYCLOR [Concomitant]
     Dosage: 20 MG 1XBD

REACTIONS (6)
  - Haemorrhage [Unknown]
  - Cerebrovascular accident [Unknown]
  - Foot deformity [Unknown]
  - Hand deformity [Unknown]
  - Arthralgia [Unknown]
  - Anaemia [Unknown]
